FAERS Safety Report 5585606-9 (Version None)
Quarter: 2007Q4

REPORT INFORMATION
  Report Type: 
  Country: None (occurrence: None)
  Receive Date: 20071204
  Receipt Date: 20070912
  Transmission Date: 20080405
  Serious: Yes (Other)
  Sender: FDA-Public Use
  Company Number: 160386USA

PATIENT
  Age: 73 Year
  Sex: Male

DRUGS (8)
  1. AZILECT [Suspect]
     Dosage: 1 MG
     Dates: start: 20070621, end: 20070601
  2. TETRYZOLINE HYDROCHLORIDE [Suspect]
     Dates: start: 20070627
  3. LORAZEPAM [Concomitant]
  4. FAMOTIDINE [Concomitant]
  5. ZOLPIDEM TARTRATE [Concomitant]
  6. LISINOPRIL [Concomitant]
  7. FEXOFENADINE [Concomitant]
  8. MICRONOGEL [Concomitant]

REACTIONS (4)
  - ANXIETY [None]
  - FLUSHING [None]
  - HEART RATE INCREASED [None]
  - HYPERTENSION [None]
